FAERS Safety Report 7603279-8 (Version None)
Quarter: 2011Q2

REPORT INFORMATION
  Report Type: 
  Country: None (occurrence: None)
  Receive Date: 20110630
  Receipt Date: 20110617
  Transmission Date: 20111010
  Serious: Yes (Hospitalization)
  Sender: FDA-Public Use
  Company Number: 2011134994

PATIENT
  Age: 72 Year
  Sex: Female

DRUGS (2)
  1. DALTEPARIN SODIUM [Suspect]
     Indication: LUNG NEOPLASM MALIGNANT
  2. ZOMETA [Concomitant]

REACTIONS (6)
  - ATRIAL FIBRILLATION [None]
  - MUSCULOSKELETAL PAIN [None]
  - ARTHRALGIA [None]
  - DEEP VEIN THROMBOSIS [None]
  - PULMONARY EMBOLISM [None]
  - HYPOTENSION [None]
